FAERS Safety Report 7908289-9 (Version None)
Quarter: 2011Q4

REPORT INFORMATION
  Report Type: 
  Country: None (occurrence: None)
  Receive Date: 20111111
  Receipt Date: 20111028
  Transmission Date: 20120403
  Serious: Yes (Hospitalization)
  Sender: FDA-Public Use
  Company Number: DE-RANBAXY-2011US-50090

PATIENT

DRUGS (6)
  1. IBUPROFEN [Suspect]
     Indication: PRODUCT USED FOR UNKNOWN INDICATION
     Dosage: APPROX. 8 G DAILY
     Route: 048
  2. TILIDINE / NALOXENE [Suspect]
     Indication: INTENTIONAL DRUG MISUSE
     Dosage: MAX. 20 TABLETS DAILY
     Route: 048
  3. GABAPENTIN [Suspect]
     Indication: PRODUCT USED FOR UNKNOWN INDICATION
     Dosage: MAX. 9.9 G DAILY
     Route: 048
  4. VITAMIN B COMPLEX CAP [Concomitant]
     Indication: PRODUCT USED FOR UNKNOWN INDICATION
     Dosage: UNK
     Route: 065
  5. PANTOPRAZOLE SODIUM [Suspect]
     Indication: INTENTIONAL DRUG MISUSE
     Dosage: 56 TABLETS, UNK
     Route: 048
     Dates: start: 20111013, end: 20111013
  6. OMEPRAZOLE [Suspect]
     Indication: PRODUCT USED FOR UNKNOWN INDICATION
     Dosage: MAX. 600 MG, DAILY
     Route: 048

REACTIONS (7)
  - DIZZINESS [None]
  - SOMNOLENCE [None]
  - SUICIDE ATTEMPT [None]
  - INTENTIONAL OVERDOSE [None]
  - PUPILLARY REFLEX IMPAIRED [None]
  - FLUSHING [None]
  - HEADACHE [None]
